FAERS Safety Report 21306259 (Version 1)
Quarter: 2022Q3

REPORT INFORMATION
  Report Type: Spontaneous
  Country: US (occurrence: None)
  Receive Date: 20220907
  Receipt Date: 20220907
  Transmission Date: 20221026
  Serious: Yes (Hospitalization)
  Sender: FDA-Public Use
  Company Number: None

PATIENT
  Sex: Male

DRUGS (1)
  1. ENVARSUS XR [Suspect]
     Active Substance: TACROLIMUS
     Indication: Renal transplant
     Dosage: TAKE 12 TABLETS BY MOUTH EVERY MORNING ON AN EMPTY STOMACH FOR PREVENTION OF KIDNEY TRANSPLANT ?REJE
     Route: 048
     Dates: start: 20220818

REACTIONS (1)
  - Kidney transplant rejection [None]
